FAERS Safety Report 6087288-9 (Version None)
Quarter: 2009Q1

REPORT INFORMATION
  Report Type: 
  Country: None (occurrence: None)
  Receive Date: 20090223
  Receipt Date: 20090217
  Transmission Date: 20090719
  Serious: Yes (Hospitalization, Disabling)
  Sender: FDA-Public Use
  Company Number: A0731556A

PATIENT
  Age: 39 Year
  Sex: Male
  Weight: 113.6 kg

DRUGS (6)
  1. AVANDIA [Suspect]
     Dosage: 8MG IN THE MORNING
     Route: 048
     Dates: start: 20030601, end: 20071020
  2. VYTORIN [Concomitant]
  3. ATENOLOL [Concomitant]
  4. XANAX [Concomitant]
  5. CRESTOR [Concomitant]
  6. LOTENSIN [Concomitant]

REACTIONS (3)
  - CARDIAC FAILURE CONGESTIVE [None]
  - CORONARY ARTERY DISEASE [None]
  - MYOCARDIAL INFARCTION [None]
